FAERS Safety Report 8611531-2 (Version None)
Quarter: 2012Q3

REPORT INFORMATION
  Report Type: 
  Country: None (occurrence: None)
  Receive Date: 20120809
  Receipt Date: 20120725
  Transmission Date: 20120928
  Serious: Yes (Death, Hospitalization, Other)
  Sender: FDA-Public Use
  Company Number: 2012MA009156

PATIENT
  Age: 29 Year
  Sex: Male

DRUGS (4)
  1. PREGABALIN [Suspect]
     Indication: INTENTIONAL DRUG MISUSE
     Dosage: IV
     Route: 042
  2. HEROIN [Suspect]
     Indication: INTENTIONAL DRUG MISUSE
     Dosage: IV
     Route: 042
  3. CLONAZEPAM [Suspect]
     Indication: INTENTIONAL DRUG MISUSE
     Dosage: IV
     Route: 042
  4. KADIAN [Suspect]
     Indication: INTENTIONAL DRUG MISUSE
     Dosage: IV
     Route: 042

REACTIONS (13)
  - TOXICITY TO VARIOUS AGENTS [None]
  - ELECTROCARDIOGRAM ST SEGMENT ABNORMAL [None]
  - RESUSCITATION [None]
  - PULSE ABSENT [None]
  - VOMITING [None]
  - BUNDLE BRANCH BLOCK RIGHT [None]
  - PULMONARY CONGESTION [None]
  - PULMONARY OEDEMA [None]
  - UNRESPONSIVE TO STIMULI [None]
  - LOSS OF CONSCIOUSNESS [None]
  - HYPOTENSION [None]
  - APNOEA [None]
  - OPIATES POSITIVE [None]
